FAERS Safety Report 4741422-9 (Version None)
Quarter: 2005Q3

REPORT INFORMATION
  Report Type: 
  Country: None (occurrence: None)
  Receive Date: 20050810
  Receipt Date: 20050802
  Transmission Date: 20060218
  Serious: Yes (Disabling)
  Sender: FDA-Public Use
  Company Number: PHBS2005GT11195

PATIENT
  Age: 16 Year
  Sex: Female

DRUGS (1)
  1. VOLTAREN [Suspect]
     Dosage: 75 MG ONCE/SINGLE
     Route: 030

REACTIONS (2)
  - INJECTION SITE DISCOLOURATION [None]
  - INJECTION SITE NECROSIS [None]
